FAERS Safety Report 9710441 (Version 2)
Quarter: 2014Q2

REPORT INFORMATION
  Report Type: Spontaneous
  Country: US (occurrence: US)
  Receive Date: 20131126
  Receipt Date: 20140510
  Transmission Date: 20141212
  Serious: No
  Sender: FDA-Public Use
  Company Number: US-BRISTOL-MYERS SQUIBB COMPANY-18989343

PATIENT
  Age: 51 Year
  Sex: Male
  Weight: 105.21 kg

DRUGS (6)
  1. BYDUREON [Suspect]
     Indication: TYPE 2 DIABETES MELLITUS
     Dosage: PRESCRIPTION #:  385191
     Route: 058
     Dates: start: 20130512
  2. METFORMIN [Concomitant]
     Route: 048
  3. LANSOPRAZOLE [Concomitant]
  4. PRAVASTATIN SODIUM [Concomitant]
  5. ENALAPRIL [Concomitant]
     Route: 048
  6. VERAPAMIL [Concomitant]
     Dosage: TABS

REACTIONS (3)
  - Injection site nodule [Recovering/Resolving]
  - Injection site pain [Recovering/Resolving]
  - Injection site swelling [Recovering/Resolving]
